FAERS Safety Report 19901821 (Version 2)
Quarter: 2021Q4

REPORT INFORMATION
  Report Type: Spontaneous
  Country: US (occurrence: US)
  Receive Date: 20210929
  Receipt Date: 20211124
  Transmission Date: 20220303
  Serious: No
  Sender: FDA-Public Use
  Company Number: US-CELGENE-USA-20210905292

PATIENT
  Sex: Female

DRUGS (1)
  1. REVLIMID [Suspect]
     Active Substance: LENALIDOMIDE
     Indication: Plasma cell myeloma
     Dosage: 5MG
     Route: 048
     Dates: start: 202009, end: 20211112

REACTIONS (3)
  - Palpitations [Unknown]
  - Heart rate increased [Unknown]
  - Haemoglobin decreased [Unknown]
